FAERS Safety Report 20246332 (Version 2)
Quarter: 2022Q1

REPORT INFORMATION
  Report Type: Spontaneous
  Country: US (occurrence: US)
  Receive Date: 20211229
  Receipt Date: 20220124
  Transmission Date: 20220423
  Serious: Yes (Hospitalization, Other)
  Sender: FDA-Public Use
  Company Number: US-LOREAL USA PRODUCTS, INC.-2021LOR00030

PATIENT
  Sex: Female

DRUGS (12)
  1. RENERGIE LIFT MAKEUP SUNSCREEN BROAD SPECTRUM SPF 20 [Suspect]
     Active Substance: OCTINOXATE\TITANIUM DIOXIDE
     Dosage: UNK
     Dates: start: 20211112, end: 20211112
  2. COSMETICS [Suspect]
     Active Substance: COSMETICS
     Dosage: UNK
     Dates: start: 20211112, end: 20211112
  3. COSMETICS [Suspect]
     Active Substance: COSMETICS
     Dosage: UNK
     Dates: start: 20211112, end: 20211112
  4. COSMETICS [Suspect]
     Active Substance: COSMETICS
     Dosage: UNK
     Dates: start: 20211112, end: 20211112
  5. COSMETICS [Suspect]
     Active Substance: COSMETICS
     Dosage: UNK
     Dates: start: 20211112, end: 20211112
  6. COSMETICS [Suspect]
     Active Substance: COSMETICS
     Dosage: UNK
     Dates: start: 20211112, end: 20211112
  7. COSMETICS [Suspect]
     Active Substance: COSMETICS
     Dosage: UNK
     Dates: start: 20211112, end: 20211112
  8. COSMETICS [Suspect]
     Active Substance: COSMETICS
     Dosage: UNK
     Dates: start: 20211112, end: 20211112
  9. COSMETICS [Suspect]
     Active Substance: COSMETICS
     Dosage: UNK
     Dates: start: 20211112, end: 20211112
  10. COSMETICS [Suspect]
     Active Substance: COSMETICS
     Dosage: UNK
     Dates: start: 20211112, end: 20211112
  11. COSMETICS [Suspect]
     Active Substance: COSMETICS
     Dosage: UNK
     Dates: start: 20211112, end: 20211112
  12. COSMETICS [Suspect]
     Active Substance: COSMETICS
     Dosage: UNK
     Dates: start: 20211112, end: 20211112

REACTIONS (5)
  - Swelling face [Recovered/Resolved]
  - Eye swelling [Recovered/Resolved]
  - Application site rash [Recovered/Resolved]
  - Application site pain [Recovered/Resolved]
  - Cerebral palsy [Recovered/Resolved]

NARRATIVE: CASE EVENT DATE: 20211115
